FAERS Safety Report 10701103 (Version 1)
Quarter: 2015Q1

REPORT INFORMATION
  Report Type: Report from Study
  Country: JP (occurrence: JP)
  Receive Date: 20150109
  Receipt Date: 20150109
  Transmission Date: 20150721
  Serious: Yes (Other)
  Sender: FDA-Public Use
  Company Number: JP-009507513-1501JPN001366

PATIENT
  Age: 75 Year
  Sex: Male
  Weight: 47 kg

DRUGS (20)
  1. RIBAVIRIN. [Suspect]
     Active Substance: RIBAVIRIN
     Dosage: 400 MG, QD
     Route: 048
     Dates: start: 20140716, end: 20140723
  2. URSO [Concomitant]
     Active Substance: URSODIOL
     Indication: CHRONIC HEPATITIS C
     Dosage: 600 MG, QD
     Route: 048
  3. PURSENNID (SENNOSIDES) [Concomitant]
     Indication: PROPHYLAXIS
     Dosage: 24 MG, QD
     Route: 048
  4. LAFUTIDINE [Concomitant]
     Active Substance: LAFUTIDINE
     Indication: GASTROOESOPHAGEAL REFLUX DISEASE
     Dosage: 20 MG, QD
     Route: 048
     Dates: start: 20140730
  5. ALLELOCK [Concomitant]
     Active Substance: OLOPATADINE HYDROCHLORIDE
     Indication: PRURITUS
     Dosage: 10 MG, QD
     Route: 048
  6. AMLODIPINE [Concomitant]
     Active Substance: AMLODIPINE BESYLATE
     Indication: HYPERLIPIDAEMIA
     Dosage: 2.5 MG, QD
     Route: 048
  7. MYSLEE [Concomitant]
     Active Substance: ZOLPIDEM TARTRATE
     Indication: PROPHYLAXIS
     Dosage: 2.5 MG, QD
     Route: 048
  8. RIBAVIRIN. [Suspect]
     Active Substance: RIBAVIRIN
     Indication: CHRONIC HEPATITIS C
     Dosage: 600 MG, QD
     Route: 048
     Dates: start: 20140709, end: 20140715
  9. LOXOPROFEN [Concomitant]
     Active Substance: LOXOPROFEN
     Indication: PROPHYLAXIS
     Dosage: 60 MG, QD
     Route: 048
  10. SIMEPREVIR [Suspect]
     Active Substance: SIMEPREVIR
     Indication: CHRONIC HEPATITIS C
     Dosage: 100 MG, QD
     Route: 048
     Dates: start: 20140709, end: 20140723
  11. TEPRENONE [Concomitant]
     Active Substance: TEPRENONE
     Indication: PROPHYLAXIS
     Dosage: 150 MG, QD
     Route: 048
     Dates: start: 20140709
  12. REBAMIPIDE [Concomitant]
     Active Substance: REBAMIPIDE
     Indication: PROPHYLAXIS
     Dosage: 100 MG, QD
     Route: 065
     Dates: start: 20140709
  13. PEGINTRON [Suspect]
     Active Substance: PEGINTERFERON ALFA-2B
     Dosage: 1 MICROGRAM PER KILOGRAM, QW
     Route: 058
     Dates: start: 20140716, end: 20140723
  14. GLYCYRRHIZA [Concomitant]
     Active Substance: LICORICE
     Dosage: 3.9 G, QD
     Route: 048
  15. LOCHOL (FLUVASTATIN SODIUM) [Concomitant]
     Active Substance: FLUVASTATIN SODIUM
     Indication: HYPERLIPIDAEMIA
     Dosage: 20 MG, QD
     Route: 048
     Dates: start: 20140709
  16. PEGINTRON [Suspect]
     Active Substance: PEGINTERFERON ALFA-2B
     Indication: CHRONIC HEPATITIS C
     Dosage: 1.2 MICROGRAM PER KILOGRAM, QW
     Route: 058
     Dates: start: 20140709, end: 20140715
  17. L CARTIN [Concomitant]
     Indication: CARNITINE DEFICIENCY
     Dosage: 1800 MG, QD
     Route: 048
     Dates: start: 20140709
  18. EPINASTINE HYDROCHLORIDE. [Concomitant]
     Active Substance: EPINASTINE HYDROCHLORIDE
     Indication: PRURITUS
     Dosage: 20 MG, QD
     Route: 048
     Dates: start: 20140716
  19. PARIET [Concomitant]
     Active Substance: RABEPRAZOLE SODIUM
     Indication: GASTROOESOPHAGEAL REFLUX DISEASE
     Dosage: 10 MG, QD
     Route: 048
     Dates: start: 20140716
  20. IDOMETHINE [Concomitant]
     Active Substance: INDOMETHACIN
     Indication: CARNITINE DEFICIENCY
     Dosage: UNK
     Route: 061

REACTIONS (4)
  - Decreased appetite [Recovered/Resolved]
  - White blood cell count decreased [Not Recovered/Not Resolved]
  - Anaemia [Recovered/Resolved]
  - Platelet count decreased [Not Recovered/Not Resolved]

NARRATIVE: CASE EVENT DATE: 20140716
